FAERS Safety Report 6528952-4 (Version None)
Quarter: 2010Q1

REPORT INFORMATION
  Report Type: 
  Country: None (occurrence: None)
  Receive Date: 20100106
  Receipt Date: 20091217
  Transmission Date: 20100710
  Serious: Yes (Hospitalization)
  Sender: FDA-Public Use
  Company Number: PL-SANOFI-AVENTIS-F01200900729

PATIENT
  Age: 75 Year
  Sex: Male

DRUGS (7)
  1. LEUPRORELIN ACETATE [Suspect]
     Indication: PROSTATE CANCER
     Route: 058
     Dates: start: 20090113, end: 20090113
  2. LEUPRORELIN ACETATE [Suspect]
     Route: 058
     Dates: start: 20060929, end: 20060929
  3. TRANDOLAPRIL [Concomitant]
     Dates: end: 20090508
  4. METOPROLOL TARTRATE [Concomitant]
     Dates: end: 20090508
  5. ATENOLOL [Concomitant]
     Dates: end: 20090508
  6. HYDROCHLOROTHIAZIDE [Concomitant]
  7. TELMISARTAN [Concomitant]

REACTIONS (2)
  - PULMONARY EMBOLISM [None]
  - PULMONARY HYPERTENSION [None]
